FAERS Safety Report 9637382 (Version 3)
Quarter: 2014Q2

REPORT INFORMATION
  Report Type: Spontaneous
  Country: CN (occurrence: CN)
  Receive Date: 20131022
  Receipt Date: 20140515
  Transmission Date: 20141212
  Serious: Yes (Other)
  Sender: FDA-Public Use
  Company Number: PHHY2013CN062774

PATIENT
  Sex: Female

DRUGS (2)
  1. ACLASTA [Suspect]
     Indication: OSTEOPOROSIS POSTMENOPAUSAL
     Dosage: 5 MG ONCE IN 365 DAYS
     Route: 042
     Dates: start: 20130618, end: 20130618
  2. CALCIUM [Concomitant]
     Indication: OSTEOPOROSIS
     Dosage: UNK

REACTIONS (5)
  - Conjunctival oedema [Recovering/Resolving]
  - Exophthalmos [Recovering/Resolving]
  - Eye oedema [Recovering/Resolving]
  - Ocular hyperaemia [Recovering/Resolving]
  - Eye disorder [Recovering/Resolving]
